FAERS Safety Report 8625434-0 (Version None)
Quarter: 2012Q3

REPORT INFORMATION
  Report Type: 
  Country: None (occurrence: None)
  Receive Date: 20120827
  Receipt Date: 20120821
  Transmission Date: 20120928
  Serious: Yes (Other)
  Sender: FDA-Public Use
  Company Number: US-ACTELION-A-US2012-67910

PATIENT
  Age: 68 Year
  Sex: Female

DRUGS (1)
  1. TRACLEER [Suspect]
     Indication: PULMONARY ARTERIAL HYPERTENSION
     Dosage: UNK
     Route: 048

REACTIONS (9)
  - FALL [None]
  - LIMB INJURY [None]
  - CHEST PAIN [None]
  - DIZZINESS EXERTIONAL [None]
  - PARKINSON'S DISEASE [None]
  - HEAD INJURY [None]
  - DYSPNOEA [None]
  - CELLULITIS [None]
  - ROTATOR CUFF SYNDROME [None]
